FAERS Safety Report 5265846-9 (Version None)
Quarter: 2007Q1

REPORT INFORMATION
  Report Type: 
  Country: None (occurrence: None)
  Receive Date: 20070312
  Receipt Date: 20070312
  Transmission Date: 20070707
  Serious: Yes (Hospitalization)
  Sender: FDA-Public Use
  Company Number: None

PATIENT
  Age: 67 Year
  Sex: Male
  Weight: 83 kg

DRUGS (9)
  1. LOVENOX [Suspect]
     Dosage: 100MG,Q12H,SUBCUTAN
     Route: 058
     Dates: start: 20061103, end: 20061226
  2. ROSIGILITAZONE MALEATE [Concomitant]
  3. MAGNESIUM OXIDE [Concomitant]
  4. DILTIAEM (INWOOD) [Concomitant]
  5. LEVALBUTEROL TART [Concomitant]
  6. ALBUTEROL SO4 [Concomitant]
  7. DOCUSATE SODIUM (COLACE) [Concomitant]
  8. FENTANYL [Concomitant]
  9. MORPHINE [Concomitant]

REACTIONS (2)
  - ANAEMIA [None]
  - HAEMORRHAGE [None]
